FAERS Safety Report 19672950 (Version 1)
Quarter: 2021Q3

REPORT INFORMATION
  Report Type: Report from Study
  Country: IN (occurrence: IN)
  Receive Date: 20210809
  Receipt Date: 20210809
  Transmission Date: 20211014
  Serious: Yes (Other)
  Sender: FDA-Public Use
  Company Number: NVSC2021IN173177

PATIENT
  Age: 68 Year
  Sex: Female

DRUGS (5)
  1. METOPROLOL SUCCINATE. [Concomitant]
     Active Substance: METOPROLOL SUCCINATE
     Indication: HYPERTENSION
     Dosage: 25 MG, QD (OD)
     Route: 065
  2. SCAPHO [Suspect]
     Active Substance: SECUKINUMAB
     Indication: PSORIATIC ARTHROPATHY
     Dosage: 150 MG, QW (LAST DOSE)
     Route: 058
     Dates: start: 20210722
  3. SCAPHO [Suspect]
     Active Substance: SECUKINUMAB
     Dosage: 150 MG, QW (CURRENT DOSE)
     Route: 058
     Dates: start: 20210729
  4. TEMSAN [Concomitant]
     Indication: HYPERTENSION
     Dosage: 40 MG, BID (BD)
     Route: 065
  5. CILNIDIPINE [Concomitant]
     Active Substance: CILNIDIPINE
     Indication: HYPERTENSION
     Dosage: 10 MG, BID (BD)
     Route: 065

REACTIONS (1)
  - Blood pressure increased [Unknown]
